FAERS Safety Report 16263460 (Version 1)
Quarter: 2019Q2

REPORT INFORMATION
  Report Type: Spontaneous
  Country: SE (occurrence: SE)
  Receive Date: 20190502
  Receipt Date: 20190502
  Transmission Date: 20190711
  Serious: Yes (Hospitalization)
  Sender: FDA-Public Use
  Company Number: SE-TEVA-2019-SE-1044758

PATIENT
  Age: 28 Year
  Sex: Male

DRUGS (2)
  1. STESOLID [Suspect]
     Active Substance: DIAZEPAM
     Route: 048
     Dates: start: 201903, end: 201903
  2. DIMOR [Suspect]
     Active Substance: LOPERAMIDE
     Route: 048
     Dates: start: 201903, end: 201903

REACTIONS (8)
  - Dyspnoea [Unknown]
  - Tachycardia [Unknown]
  - Intentional overdose [Unknown]
  - Bundle branch block right [Unknown]
  - Somnolence [Unknown]
  - Hypertension [Unknown]
  - Depressed level of consciousness [Unknown]
  - Drug abuse [Unknown]

NARRATIVE: CASE EVENT DATE: 201903
